FAERS Safety Report 16072347 (Version 3)
Quarter: 2019Q2

REPORT INFORMATION
  Report Type: Report from Study
  Country: US (occurrence: US)
  Receive Date: 20190314
  Receipt Date: 20190401
  Transmission Date: 20190711
  Serious: Yes (Death, Life-Threatening, Hospitalization)
  Sender: FDA-Public Use
  Company Number: US-EISAI MEDICAL RESEARCH-EC-2019-053151

PATIENT
  Age: 74 Year
  Sex: Female
  Weight: 68.5 kg

DRUGS (16)
  1. TESSALON [Concomitant]
     Active Substance: BENZONATATE
  2. PRINIVIL [Concomitant]
     Active Substance: LISINOPRIL
  3. DELTASONE [Concomitant]
     Active Substance: PREDNISONE
  4. SENOKOT [Concomitant]
     Active Substance: SENNOSIDES
  5. BACTRIM DS [Concomitant]
     Active Substance: SULFAMETHOXAZOLE\TRIMETHOPRIM
  6. LENVIMA [Suspect]
     Active Substance: LENVATINIB
     Indication: THYROID CANCER
     Route: 048
     Dates: start: 20190226, end: 20190306
  7. LOVENOX [Concomitant]
     Active Substance: ENOXAPARIN SODIUM
  8. ZESTRIL [Concomitant]
     Active Substance: LISINOPRIL
  9. SYNTHROID [Concomitant]
     Active Substance: LEVOTHYROXINE SODIUM
  10. AMBIEN CR [Concomitant]
     Active Substance: ZOLPIDEM TARTRATE
  11. CODEINE [Concomitant]
     Active Substance: CODEINE
  12. DUO-NEB [Concomitant]
  13. ACCUNEB [Concomitant]
     Active Substance: ALBUTEROL SULFATE
  14. PHENERGAN [Concomitant]
     Active Substance: PROMETHAZINE HYDROCHLORIDE
  15. PROVENTIL [Concomitant]
     Active Substance: ALBUTEROL
  16. CALCIUM-VITAMIN D [Concomitant]
     Active Substance: CALCIUM\VITAMIN D

REACTIONS (8)
  - Ischaemic hepatitis [Fatal]
  - Blood loss anaemia [Fatal]
  - Decreased appetite [Not Recovered/Not Resolved]
  - Weight decreased [Not Recovered/Not Resolved]
  - Respiratory failure [Fatal]
  - Asthenia [Fatal]
  - Nausea [Not Recovered/Not Resolved]
  - Unresponsive to stimuli [Unknown]

NARRATIVE: CASE EVENT DATE: 2019
